FAERS Safety Report 7963944-X (Version None)
Quarter: 2011Q4

REPORT INFORMATION
  Report Type: 
  Country: None (occurrence: None)
  Receive Date: 20111206
  Receipt Date: 20111121
  Transmission Date: 20120403
  Serious: Yes (Hospitalization)
  Sender: FDA-Public Use
  Company Number: 1000020118

PATIENT
  Age: 63 Year
  Sex: Male
  Weight: 77 kg

DRUGS (7)
  1. SPIRIVA (TIOTROPIUM BROMIDE) (TIOTROPIUM BROMIDE [Concomitant]
  2. SUPRAX (CEFOTAXIME SODIUM) (400 MILLIGRAM) (CEFOTAXIME SODIUM) [Concomitant]
  3. MIGRAINE-KRANIT (MIGRAENE-KRANIT) (500) (MIGRAENE-KRANIT) [Concomitant]
  4. ROFLUMILAST (ROFLUMILAST) (TABLETS) [Suspect]
     Indication: CHRONIC OBSTRUCTIVE PULMONARY DISEASE
     Dosage: 500 MCG (500 MCG),ORAL
     Route: 048
     Dates: start: 20110101, end: 20110315
  5. ROFLUMILAST (ROFLUMILAST) (TABLETS) [Suspect]
     Indication: CHRONIC OBSTRUCTIVE PULMONARY DISEASE
     Dosage: 500 MCG (500 MCG),ORAL
     Route: 048
     Dates: start: 20110224, end: 20110227
  6. BERODUAL (DUOVENT) (DUOVENT) [Concomitant]
  7. RAMIPRIL COMP (SALUTEC) (SALUTEC) [Concomitant]

REACTIONS (8)
  - DEPRESSION [None]
  - PROCTITIS [None]
  - DIVERTICULUM INTESTINAL [None]
  - NIGHTMARE [None]
  - NAUSEA [None]
  - CHOLECYSTITIS [None]
  - HAEMATOCHEZIA [None]
  - FAECALOMA [None]
